FAERS Safety Report 13863569 (Version 2)
Quarter: 2017Q3

REPORT INFORMATION
  Report Type: Spontaneous
  Country: US (occurrence: US)
  Receive Date: 20170814
  Receipt Date: 20170929
  Transmission Date: 20171127
  Serious: No
  Sender: FDA-Public Use
  Company Number: US-PFIZER INC-2017351029

PATIENT
  Age: 69 Year
  Sex: Male

DRUGS (4)
  1. LYRICA [Suspect]
     Active Substance: PREGABALIN
     Dosage: 400 MG, DAILY
     Dates: start: 20170705
  2. LYRICA [Suspect]
     Active Substance: PREGABALIN
     Indication: FIBROMYALGIA
     Dosage: 600 MG, DAILY
     Dates: start: 2015
  3. DESIPRAMINE [Concomitant]
     Active Substance: DESIPRAMINE
     Dosage: 100 MG, 1X/DAY (AT NIGHT)
  4. DESIPRAMINE [Concomitant]
     Active Substance: DESIPRAMINE
     Dosage: 25 MG, UNK

REACTIONS (4)
  - Prescribed overdose [Unknown]
  - Condition aggravated [Recovered/Resolved]
  - Fibromyalgia [Recovered/Resolved]
  - Intentional product use issue [Recovered/Resolved]

NARRATIVE: CASE EVENT DATE: 2015
